FAERS Safety Report 10339609 (Version 1)
Quarter: 2014Q3

REPORT INFORMATION
  Report Type: Spontaneous
  Country: US (occurrence: None)
  Receive Date: 20140723
  Receipt Date: 20140723
  Transmission Date: 20150326
  Serious: No
  Sender: FDA-Public Use
  Company Number: None

PATIENT
  Age: 2 Year
  Sex: Male
  Weight: 11.1 kg

DRUGS (6)
  1. MESNA. [Suspect]
     Active Substance: MESNA
  2. VINCRISTINE SULFATE. [Suspect]
     Active Substance: VINCRISTINE SULFATE
  3. CISPLATIN. [Suspect]
     Active Substance: CISPLATIN
  4. ETOPOSIDE (VP-16) [Suspect]
     Active Substance: ETOPOSIDE
  5. FILGRASTIM [Suspect]
     Active Substance: FILGRASTIM
  6. CYCLOPHOSPHAMIDE. [Suspect]
     Active Substance: CYCLOPHOSPHAMIDE

REACTIONS (6)
  - Platelet count decreased [None]
  - Pyrexia [None]
  - White blood cell count decreased [None]
  - Neutropenia [None]
  - Hypophagia [None]
  - Decreased activity [None]

NARRATIVE: CASE EVENT DATE: 20140709
